FAERS Safety Report 10686139 (Version 1)
Quarter: 2014Q4

REPORT INFORMATION
  Report Type: Spontaneous
  Country: US (occurrence: US)
  Receive Date: 20141231
  Receipt Date: 20141231
  Transmission Date: 20150529
  Serious: Yes (Other)
  Sender: FDA-Public Use
  Company Number: PHHY2014US168081

PATIENT
  Age: 35 Year
  Sex: Male

DRUGS (2)
  1. MIRTAZAPINE. [Concomitant]
     Active Substance: MIRTAZAPINE
     Indication: MAJOR DEPRESSION
     Route: 065
  2. BUPROPION [Suspect]
     Active Substance: BUPROPION
     Indication: MAJOR DEPRESSION
     Dosage: 300 MG, QD
     Route: 065

REACTIONS (5)
  - Presyncope [Unknown]
  - Conduction disorder [Unknown]
  - Brugada syndrome [Recovered/Resolved]
  - Atrial flutter [Unknown]
  - Arrhythmia [Unknown]
